FAERS Safety Report 5169084-X (Version None)
Quarter: 2006Q4

REPORT INFORMATION
  Report Type: 
  Country: None (occurrence: None)
  Receive Date: 20061201
  Receipt Date: 20061121
  Transmission Date: 20070319
  Serious: Yes (Hospitalization, Other)
  Sender: FDA-Public Use
  Company Number: 2006BI014377

PATIENT
  Age: 63 Year
  Sex: Female

DRUGS (1)
  1. AVONEX [Suspect]
     Indication: MULTIPLE SCLEROSIS
     Dosage: 30 UG;IM
     Route: 030
     Dates: start: 20060914, end: 20061002

REACTIONS (4)
  - ACUTE RESPIRATORY FAILURE [None]
  - BURNING SENSATION [None]
  - COMA [None]
  - PNEUMONIA [None]
